FAERS Safety Report 16947508 (Version 2)
Quarter: 2019Q4

REPORT INFORMATION
  Report Type: Spontaneous
  Country: US (occurrence: US)
  Receive Date: 20191022
  Receipt Date: 20191101
  Transmission Date: 20200122
  Serious: Yes (Hospitalization)
  Sender: FDA-Public Use
  Company Number: US-TEVA-2019-US-1125521

PATIENT
  Age: 77 Year
  Sex: Male

DRUGS (2)
  1. ATORVASTATIN [Suspect]
     Active Substance: ATORVASTATIN
     Route: 065
  2. ATORVASTATIN [Suspect]
     Active Substance: ATORVASTATIN
     Dosage: RECEIVED INCREASED DOSAGE AS PER PRIMARY CARE PHYSICIAN A FEW MONTHS PRIOR.
     Route: 065

REACTIONS (3)
  - Myopathy [Unknown]
  - Dyspnoea [Recovering/Resolving]
  - Diaphragm muscle weakness [Unknown]
